FAERS Safety Report 5296746-6 (Version None)
Quarter: 2007Q2

REPORT INFORMATION
  Report Type: 
  Country: None (occurrence: None)
  Receive Date: 20070413
  Receipt Date: 20070409
  Transmission Date: 20071010
  Serious: Yes (Hospitalization)
  Sender: FDA-Public Use
  Company Number: CG-MERCK-0609USA04321

PATIENT
  Age: 21 Year
  Sex: Male

DRUGS (1)
  1. STROMECTOL [Suspect]
     Route: 048
     Dates: start: 20060211, end: 20060211

REACTIONS (7)
  - COLITIS [None]
  - DEPRESSED LEVEL OF CONSCIOUSNESS [None]
  - HEADACHE [None]
  - LOGORRHOEA [None]
  - MUSCLE SPASMS [None]
  - PRURITUS [None]
  - VERTIGO [None]
